FAERS Safety Report 4692170-5 (Version None)
Quarter: 2005Q2

REPORT INFORMATION
  Report Type: 
  Country: None (occurrence: None)
  Receive Date: 20050614
  Receipt Date: 20050531
  Transmission Date: 20051028
  Serious: Yes (Death, Life-Threatening, Congenital Anomaly, Other)
  Sender: FDA-Public Use
  Company Number: A-CH2003-03900

PATIENT
  Age: 23 Year
  Sex: Female

DRUGS (4)
  1. TRACLEER [Suspect]
     Indication: PULMONARY HYPERTENSION
     Dosage: SEE IMAGE, ORAL
     Route: 048
     Dates: start: 20021101, end: 20021105
  2. TRACLEER [Suspect]
     Indication: PULMONARY HYPERTENSION
     Dosage: SEE IMAGE, ORAL
     Route: 048
     Dates: start: 20021106, end: 20030306
  3. TRACLEER [Suspect]
     Indication: PULMONARY HYPERTENSION
     Dosage: SEE IMAGE, ORAL
     Route: 048
     Dates: start: 20030307, end: 20030716
  4. TRACLEER [Suspect]
     Indication: PULMONARY HYPERTENSION
     Dosage: SEE IMAGE, ORAL
     Route: 048
     Dates: start: 20030717

REACTIONS (17)
  - BRONCHITIS [None]
  - CAESAREAN SECTION [None]
  - CARDIO-RESPIRATORY ARREST NEONATAL [None]
  - CEREBRAL HAEMORRHAGE NEONATAL [None]
  - COUGH [None]
  - DRUG EXPOSURE DURING PREGNANCY [None]
  - HEPATIC ENZYME INCREASED [None]
  - HYPERBILIRUBINAEMIA NEONATAL [None]
  - NEONATAL DISORDER [None]
  - NEONATAL RESPIRATORY DISTRESS SYNDROME [None]
  - PREGNANCY [None]
  - PREMATURE LABOUR [None]
  - REFLUX GASTRITIS [None]
  - RESPIRATORY TRACT INFECTION [None]
  - SUDDEN INFANT DEATH SYNDROME [None]
  - SUPRAVENTRICULAR TACHYCARDIA [None]
  - VOMITING NEONATAL [None]
